FAERS Safety Report 4724286-9 (Version None)
Quarter: 2005Q3

REPORT INFORMATION
  Report Type: 
  Country: None (occurrence: None)
  Receive Date: 20050722
  Receipt Date: 20050712
  Transmission Date: 20060218
  Serious: Yes (Hospitalization)
  Sender: FDA-Public Use
  Company Number: 2005099621

PATIENT
  Age: 32 Year
  Sex: Male

DRUGS (8)
  1. DALTEPARIN SODIUM [Suspect]
     Indication: THROMBOSIS PROPHYLAXIS
     Dosage: (1 IN 1 D), SUBCUTANEOUS
     Route: 058
     Dates: start: 20050609
  2. NORVASC [Concomitant]
  3. NEXIUM [Concomitant]
  4. CELLCEPT [Concomitant]
  5. SIROLIMUS (SIROLIMUS) [Concomitant]
  6. PREDNISON (PREDNISONE) [Concomitant]
  7. BACTRIM [Concomitant]
  8. BELOC (METOPROLOL TARTRATE) [Concomitant]

REACTIONS (1)
  - HEPATOCELLULAR DAMAGE [None]
